FAERS Safety Report 7685482-4 (Version None)
Quarter: 2011Q3

REPORT INFORMATION
  Report Type: 
  Country: None (occurrence: None)
  Receive Date: 20110816
  Receipt Date: 20110802
  Transmission Date: 20111222
  Serious: Yes (Hospitalization)
  Sender: FDA-Public Use
  Company Number: IE-ELI_LILLY_AND_COMPANY-IE201108001113

PATIENT
  Sex: Female

DRUGS (7)
  1. CALCIUM CARBONATE [Concomitant]
  2. ZOCOR [Concomitant]
  3. LERCANIDIPINE [Concomitant]
  4. OMESAR [Concomitant]
  5. NEXIUM [Concomitant]
  6. FORTEO [Suspect]
     Indication: OSTEOPOROSIS
     Dosage: 20 UG, UNK
     Dates: start: 20110318
  7. NEBIVOLOL HCL [Concomitant]

REACTIONS (4)
  - HEAD INJURY [None]
  - FALL [None]
  - PELVIC FRACTURE [None]
  - BLOOD SODIUM DECREASED [None]
